FAERS Safety Report 5762489 (Version 1)
Quarter: 2020Q3

REPORT INFORMATION
  Report Type: Report from Study
  Country: FR (occurrence: FR)
  Receive Date: 20050321
  Receipt Date: 20050321
  Transmission Date: 20201104
  Serious: Yes (Other)
  Sender: FDA-Public Use
  Company Number: 393789

PATIENT
  Age: 26 Year
  Sex: Male
  Weight: 59.1 kg

DRUGS (3)
  1. RITONAVIR. [Suspect]
     Active Substance: RITONAVIR
     Route: 048
     Dates: start: 20050124, end: 20050124
  2. SAQUINAVIR [Suspect]
     Active Substance: SAQUINAVIR
     Route: 048
     Dates: start: 20050124, end: 20050124
  3. RIFAMPICIN [Suspect]
     Active Substance: RIFAMPIN
     Route: 048
     Dates: start: 20050110, end: 20050124

REACTIONS (7)
  - Nausea [None]
  - Gamma-glutamyltransferase increased [None]
  - Transaminases increased [Recovered/Resolved]
  - Aspartate aminotransferase increased [None]
  - Vomiting [None]
  - Abdominal pain [None]
  - Alanine aminotransferase increased [None]

NARRATIVE: CASE EVENT DATE: 20050126
